FAERS Safety Report 6862765-9 (Version None)
Quarter: 2010Q3

REPORT INFORMATION
  Report Type: 
  Country: None (occurrence: None)
  Receive Date: 20100721
  Receipt Date: 20100712
  Transmission Date: 20110219
  Serious: Yes (Hospitalization)
  Sender: FDA-Public Use
  Company Number: AU-ROCHE-715350

PATIENT
  Age: 65 Year
  Sex: Male

DRUGS (8)
  1. CAPECITABINE [Suspect]
     Indication: PRODUCT USED FOR UNKNOWN INDICATION
     Route: 065
     Dates: start: 20100104
  2. OXALIPLATIN [Suspect]
     Indication: PRODUCT USED FOR UNKNOWN INDICATION
     Route: 065
     Dates: start: 20100104
  3. ESOMEPRAZOLE MAGNESIUM TRIHYDRATE [Concomitant]
  4. CLEXANE [Concomitant]
  5. FENTANYL [Concomitant]
  6. NITRAZEPAM [Concomitant]
  7. OLANZAPINE [Concomitant]
  8. OMEPRAZOLE [Concomitant]

REACTIONS (5)
  - DECREASED APPETITE [None]
  - DIARRHOEA [None]
  - DUODENAL PERFORATION [None]
  - NAUSEA [None]
  - VOMITING [None]
